FAERS Safety Report 24021532 (Version 2)
Quarter: 2024Q2

REPORT INFORMATION
  Report Type: Spontaneous
  Country: IN (occurrence: IN)
  Receive Date: 20240627
  Receipt Date: 20240627
  Transmission Date: 20240716
  Serious: No
  Sender: FDA-Public Use
  Company Number: IN-ROCHE-3527681

PATIENT
  Age: 67 Year
  Sex: Male

DRUGS (2)
  1. VABYSMO [Suspect]
     Active Substance: FARICIMAB\FARICIMAB-SVOA
     Indication: Age-related macular degeneration
     Dosage: ON 08/MAR/2024 RECEIVED SECOND INFUSION
     Route: 050
     Dates: start: 20240129
  2. VIGAMOX [Concomitant]
     Active Substance: MOXIFLOXACIN HYDROCHLORIDE
     Dosage: 1 DROP 4 TIMES FOR 2 WEEKS ;ONGOING: YES
     Route: 047
     Dates: start: 20240129

REACTIONS (2)
  - Off label use [Unknown]
  - No adverse event [Unknown]
